FAERS Safety Report 10365980 (Version 2)
Quarter: 2014Q3

REPORT INFORMATION
  Report Type: Spontaneous
  Country: GB (occurrence: None)
  Receive Date: 20140804
  Receipt Date: 20140808
  Transmission Date: 20150326
  Serious: Yes (Hospitalization)
  Sender: FDA-Public Use
  Company Number: AUR-APL-2014-08107

PATIENT

DRUGS (2)
  1. RAMIPRIL. [Suspect]
     Active Substance: RAMIPRIL
     Indication: HYPERTENSION
  2. BISOPROLOL (BISOPROLOL) [Concomitant]
     Active Substance: BISOPROLOL

REACTIONS (2)
  - Macroglossia [None]
  - Obstructive airways disorder [None]
